FAERS Safety Report 19057935 (Version 1)
Quarter: 2021Q1

REPORT INFORMATION
  Report Type: Spontaneous
  Country: US (occurrence: US)
  Receive Date: 20210325
  Receipt Date: 20210325
  Transmission Date: 20210420
  Serious: No
  Sender: FDA-Public Use
  Company Number: None

PATIENT
  Age: 79 Year
  Sex: Female
  Weight: 77 kg

DRUGS (2)
  1. MEROPENEM. [Suspect]
     Active Substance: MEROPENEM
     Indication: PNEUMONIA
     Dosage: ?          OTHER FREQUENCY:ONCE;?
     Route: 042
  2. LEVOFLOXACIN. [Suspect]
     Active Substance: LEVOFLOXACIN

REACTIONS (5)
  - Urticaria [None]
  - Drug hypersensitivity [None]
  - Dyspnoea [None]
  - Pyrexia [None]
  - Respiratory distress [None]

NARRATIVE: CASE EVENT DATE: 20200307
